FAERS Safety Report 8822810 (Version 1)
Quarter: 2012Q4

REPORT INFORMATION
  Report Type: 
  Country: US (occurrence: US)
  Receive Date: 20121003
  Receipt Date: 20121003
  Transmission Date: 20130627
  Serious: Yes (Death, Other)
  Sender: FDA-Public Use
  Company Number: US-ROCHE-1130966

PATIENT
  Sex: Female

DRUGS (2)
  1. RITUXAN [Suspect]
     Indication: NON-HODGKIN^S LYMPHOMA
     Route: 065
  2. RITUXAN [Suspect]
     Indication: LYMPHOMA

REACTIONS (6)
  - Death [Fatal]
  - Pain [Unknown]
  - Haemoglobin decreased [Unknown]
  - Fatigue [Unknown]
  - Nausea [Unknown]
  - Splenomegaly [Unknown]
